FAERS Safety Report 7806626-7 (Version None)
Quarter: 2011Q4

REPORT INFORMATION
  Report Type: 
  Country: None (occurrence: None)
  Receive Date: 20111011
  Receipt Date: 20111005
  Transmission Date: 20120403
  Serious: Yes (Death, Other)
  Sender: FDA-Public Use
  Company Number: JP-JNJFOC-20110101463

PATIENT
  Age: 8 Decade
  Sex: Female

DRUGS (1)
  1. FENTANYL-100 [Suspect]
     Indication: CANCER PAIN
     Route: 062

REACTIONS (4)
  - EUPHORIC MOOD [None]
  - PANCREATIC CARCINOMA [None]
  - HALLUCINATION [None]
  - EMOTIONAL DISORDER [None]
